FAERS Safety Report 14524207 (Version 1)
Quarter: 2018Q1

REPORT INFORMATION
  Report Type: Report from Study
  Country: None (occurrence: CA)
  Receive Date: 20180213
  Receipt Date: 20180213
  Transmission Date: 20180509
  Serious: Yes (Other)
  Sender: FDA-Public Use
  Company Number: CA-ABBVIE-15K-028-1434511-00

PATIENT
  Sex: Female
  Weight: 118.95 kg

DRUGS (3)
  1. HUMIRA [Suspect]
     Active Substance: ADALIMUMAB
     Indication: ANKYLOSING SPONDYLITIS
     Route: 058
     Dates: start: 20150417, end: 201603
  2. HUMIRA [Suspect]
     Active Substance: ADALIMUMAB
     Route: 058
     Dates: start: 2016, end: 201710
  3. HUMIRA [Suspect]
     Active Substance: ADALIMUMAB
     Route: 058
     Dates: start: 201712

REACTIONS (8)
  - Gait inability [Not Recovered/Not Resolved]
  - Back pain [Not Recovered/Not Resolved]
  - Pneumorrhachis [Recovering/Resolving]
  - Device breakage [Recovering/Resolving]
  - Bone marrow oedema [Not Recovered/Not Resolved]
  - Impaired healing [Recovering/Resolving]
  - Bone lesion [Not Recovered/Not Resolved]
  - Facet joint syndrome [Not Recovered/Not Resolved]
